FAERS Safety Report 9308862 (Version 2)
Quarter: 2013Q2

REPORT INFORMATION
  Report Type: Spontaneous
  Country: US (occurrence: US)
  Receive Date: 20130524
  Receipt Date: 20130626
  Transmission Date: 20140414
  Serious: No
  Sender: FDA-Public Use
  Company Number: US-009507513-1305USA006317

PATIENT
  Sex: Male

DRUGS (9)
  1. VICTRELIS [Suspect]
     Indication: HEPATITIS C
     Dosage: 800 MG, TID
     Route: 048
  2. PEGINTRON [Suspect]
     Dosage: 150 MICROGRAM, QW
     Route: 058
  3. REBETOL [Suspect]
     Dosage: 600 MG, BID
  4. CICLOPIROX [Concomitant]
  5. PROCRIT [Concomitant]
  6. CITRUCEL (METHYLCELLULOSE) [Concomitant]
  7. COLACE [Concomitant]
  8. ZOFRAN [Concomitant]
  9. TOBRADEX [Concomitant]

REACTIONS (1)
  - Pollakiuria [Not Recovered/Not Resolved]
